FAERS Safety Report 25474416 (Version 1)
Quarter: 2025Q2

REPORT INFORMATION
  Report Type: Other
  Country: CA (occurrence: CA)
  Receive Date: 20250624
  Receipt Date: 20250624
  Transmission Date: 20250717
  Serious: Yes (Other)
  Sender: KAMADA LTD.
  Company Number: US-KI BIOPHARMA, LLC-2025KAM00012

PATIENT
  Sex: Male

DRUGS (1)
  1. HUMAN RHO(D) IMMUNE GLOBULIN [Suspect]
     Active Substance: HUMAN RHO(D) IMMUNE GLOBULIN
     Route: 042

REACTIONS (10)
  - Respiratory rate increased [Unknown]
  - Transfusion-related circulatory overload [Unknown]
  - Hypoxia [Unknown]
  - Heart rate increased [Unknown]
  - Blood pressure increased [Unknown]
  - Overdose [Unknown]
  - Transfusion-related acute lung injury [Unknown]
  - Chills [Unknown]
  - Dyspnoea [Unknown]
  - Incorrect product administration duration [Unknown]
